FAERS Safety Report 6138437-5 (Version None)
Quarter: 2009Q1

REPORT INFORMATION
  Report Type: 
  Country: None (occurrence: None)
  Receive Date: 20090327
  Receipt Date: 20090327
  Transmission Date: 20090719
  Serious: Yes (Hospitalization)
  Sender: FDA-Public Use
  Company Number: None

PATIENT
  Sex: Male
  Weight: 103.9 kg

DRUGS (1)
  1. TEMOZOLOMIDE [Suspect]
     Dosage: 2350 MG

REACTIONS (1)
  - CELLULITIS [None]
